FAERS Safety Report 17317477 (Version 1)
Quarter: 2020Q1

REPORT INFORMATION
  Report Type: Spontaneous
  Country: US (occurrence: US)
  Receive Date: 20200124
  Receipt Date: 20200124
  Transmission Date: 20200409
  Serious: No
  Sender: FDA-Public Use
  Company Number: US-OTSUKA-2019_030780

PATIENT
  Sex: Male

DRUGS (1)
  1. REXULTI [Suspect]
     Active Substance: BREXPIPRAZOLE
     Indication: PRODUCT USED FOR UNKNOWN INDICATION
     Dosage: UNK
     Route: 065

REACTIONS (8)
  - Malaise [Unknown]
  - Insurance issue [Unknown]
  - Depression [Unknown]
  - Autism spectrum disorder [Unknown]
  - Personality change [Unknown]
  - Frustration tolerance decreased [Unknown]
  - Aggression [Unknown]
  - Product dose omission [Unknown]
